FAERS Safety Report 24770628 (Version 1)
Quarter: 2024Q4

REPORT INFORMATION
  Report Type: Report from Study
  Country: IL (occurrence: IL)
  Receive Date: 20241224
  Receipt Date: 20241224
  Transmission Date: 20250115
  Serious: Yes (Hospitalization, Other)
  Sender: TAKEDA
  Company Number: IL-TAKEDA-2024TUS128323

PATIENT
  Sex: Female

DRUGS (3)
  1. VELAGLUCERASE ALFA [Suspect]
     Active Substance: VELAGLUCERASE ALFA
     Indication: Gaucher^s disease
     Dosage: 15 INTERNATIONAL UNIT/KILOGRAM, Q2WEEKS
     Dates: start: 20091201
  2. DEPO-MEDROL [Concomitant]
     Active Substance: METHYLPREDNISOLONE ACETATE
     Indication: Back pain
     Dosage: 80 MILLIGRAM, SINGLE
     Dates: start: 20170913, end: 20170913
  3. MARCAINE [Concomitant]
     Active Substance: BUPIVACAINE HYDROCHLORIDE
     Indication: Back pain
     Dosage: 5 MILLIGRAM, SINGLE
     Dates: start: 20170913, end: 20170913

REACTIONS (1)
  - Joint abscess [Not Recovered/Not Resolved]

NARRATIVE: CASE EVENT DATE: 20241220
